FAERS Safety Report 14278282 (Version 1)
Quarter: 2017Q4

REPORT INFORMATION
  Report Type: Spontaneous
  Country: US (occurrence: US)
  Receive Date: 20171212
  Receipt Date: 20171212
  Transmission Date: 20180321
  Serious: Yes (Death)
  Sender: FDA-Public Use
  Company Number: US-ROCHE-2023751

PATIENT
  Sex: Male

DRUGS (4)
  1. ZELBORAF [Suspect]
     Active Substance: VEMURAFENIB
     Indication: LYMPHOMA
     Route: 048
     Dates: start: 20170815
  2. ZELBORAF [Suspect]
     Active Substance: VEMURAFENIB
     Indication: METASTATIC MALIGNANT MELANOMA
  3. COTELLIC [Suspect]
     Active Substance: COBIMETINIB
     Indication: LYMPHOMA
     Route: 065
  4. COTELLIC [Suspect]
     Active Substance: COBIMETINIB
     Indication: METASTATIC MALIGNANT MELANOMA

REACTIONS (1)
  - Metastatic malignant melanoma [Fatal]
